FAERS Safety Report 5483169-X (Version None)
Quarter: 2007Q4

REPORT INFORMATION
  Report Type: 
  Country: None (occurrence: None)
  Receive Date: 20071009
  Receipt Date: 20070928
  Transmission Date: 20080405
  Serious: Yes (Other)
  Sender: FDA-Public Use
  Company Number: 2006SP000571

PATIENT
  Age: 44 Year
  Sex: Female

DRUGS (3)
  1. TEMODAL [Suspect]
     Indication: GLIOBLASTOMA
     Dosage: 350 MG; PO
     Route: 048
     Dates: start: 20060324
  2. TEMODAL [Suspect]
     Indication: RECURRENT CANCER
     Dosage: 350 MG; PO
     Route: 048
     Dates: start: 20060324
  3. ZOFRAN [Concomitant]

REACTIONS (2)
  - BENIGN HYDATIDIFORM MOLE [None]
  - DRUG EXPOSURE BEFORE PREGNANCY [None]
